FAERS Safety Report 9790739 (Version 2)
Quarter: 2014Q1

REPORT INFORMATION
  Report Type: Spontaneous
  Country: JP (occurrence: JP)
  Receive Date: 20131231
  Receipt Date: 20140306
  Transmission Date: 20141002
  Serious: Yes (Hospitalization, Other)
  Sender: FDA-Public Use
  Company Number: JP-ASTRAZENECA-2013SE94508

PATIENT
  Age: 33 Year
  Sex: Female
  Weight: 46 kg

DRUGS (8)
  1. SEROQUEL [Suspect]
     Indication: DISSOCIATIVE DISORDER
     Route: 048
     Dates: start: 20130626, end: 20131215
  2. TEGRETOL [Concomitant]
     Indication: EPILEPSY
     Dates: start: 2010
  3. DEPAS [Concomitant]
     Indication: ANXIETY
  4. ROHYPNOL [Concomitant]
     Indication: INSOMNIA
  5. MEILAX [Concomitant]
     Indication: ANXIETY
     Dates: start: 20131106
  6. DORAL [Concomitant]
     Indication: INSOMNIA
     Dates: start: 20131106
  7. HIRNAMIN [Concomitant]
     Indication: ANXIETY
     Dates: start: 20131113
  8. JZOLOFT [Concomitant]
     Indication: PANIC DISORDER
     Dates: start: 20131211

REACTIONS (4)
  - Insulinoma [Not Recovered/Not Resolved]
  - Personality change due to a general medical condition [Unknown]
  - Drug dose omission [Unknown]
  - Off label use [Unknown]
